FAERS Safety Report 23673977 (Version 1)
Quarter: 2024Q1

REPORT INFORMATION
  Report Type: Spontaneous
  Country: FR (occurrence: FR)
  Receive Date: 20240326
  Receipt Date: 20240326
  Transmission Date: 20240410
  Serious: Yes (Other)
  Sender: FDA-Public Use
  Company Number: None

PATIENT
  Age: 67 Year
  Sex: Male
  Weight: 77 kg

DRUGS (19)
  1. DOXORUBICIN HYDROCHLORIDE [Suspect]
     Active Substance: DOXORUBICIN HYDROCHLORIDE
     Indication: Liposarcoma
     Dosage: 40 MG, 1X/DAY CYCLIC
     Route: 042
     Dates: start: 20240212, end: 20240213
  2. IFOSFAMIDE [Suspect]
     Active Substance: IFOSFAMIDE
     Indication: Liposarcoma
     Dosage: 3250 MG, 1X/DAY
     Route: 042
     Dates: start: 20240212, end: 20240213
  3. ALIZAPRIDE [Suspect]
     Active Substance: ALIZAPRIDE
     Dosage: 100 MG
     Dates: start: 20240212, end: 20240213
  4. LOVENOX [Suspect]
     Active Substance: ENOXAPARIN SODIUM
     Indication: Thrombosis prophylaxis
     Dosage: 4000 IU, 1X/DAY
     Route: 058
     Dates: start: 20240212, end: 20240213
  5. THIAMINE HYDROCHLORIDE [Suspect]
     Active Substance: THIAMINE HYDROCHLORIDE
     Indication: Vitamin supplementation
     Dosage: 500 MG
     Route: 048
     Dates: start: 20240212, end: 20240213
  6. VITAMIN B6 [Suspect]
     Active Substance: PYRIDOXINE HYDROCHLORIDE
     Indication: Vitamin supplementation
     Dosage: 500 MG
     Route: 048
     Dates: start: 20240212, end: 20240213
  7. METHYLENE BLUE ANHYDROUS [Suspect]
     Active Substance: METHYLENE BLUE ANHYDROUS
     Indication: Encephalopathy
     Dosage: 420 MG, 1X/DAY
     Route: 042
     Dates: start: 20240215, end: 20240216
  8. METHYLENE BLUE ANHYDROUS [Suspect]
     Active Substance: METHYLENE BLUE ANHYDROUS
     Dosage: 360 MG, 1X/DAY
     Route: 042
     Dates: start: 20240214, end: 20240214
  9. METHYLENE BLUE ANHYDROUS [Suspect]
     Active Substance: METHYLENE BLUE ANHYDROUS
     Dosage: 300 MG, 1X/DAY
     Route: 042
     Dates: start: 20240212, end: 20240213
  10. METOCLOPRAMIDE [Suspect]
     Active Substance: METOCLOPRAMIDE
     Indication: Prophylaxis of nausea and vomiting
     Dosage: 10 MG
     Route: 048
     Dates: start: 20240212, end: 20240213
  11. OLANZAPINE [Suspect]
     Active Substance: OLANZAPINE
     Indication: Prophylaxis of nausea and vomiting
     Dosage: 5 MG
     Route: 048
     Dates: start: 20240212, end: 20240213
  12. ONDANSETRON HYDROCHLORIDE [Suspect]
     Active Substance: ONDANSETRON HYDROCHLORIDE
     Indication: Prophylaxis of nausea and vomiting
     Dosage: 8 MG
     Route: 048
     Dates: start: 20240212, end: 20240213
  13. MESNA [Suspect]
     Active Substance: MESNA
     Indication: Prophylaxis
     Dosage: 6000 MG, 1X/DAY CYCLIC
     Route: 042
     Dates: start: 20240212, end: 20240213
  14. FUROSEMIDE [Suspect]
     Active Substance: FUROSEMIDE
     Indication: Fluid retention
     Dosage: 20 MG, 1X/DAY
     Route: 048
     Dates: start: 20240212, end: 20240213
  15. CHLORPROMAZINE PAMOATE [Suspect]
     Active Substance: CHLORPROMAZINE PAMOATE
     Indication: Prophylaxis of nausea and vomiting
     Dosage: 25 MG
     Route: 048
     Dates: start: 20240212, end: 20240213
  16. METHYLPREDNISOLONE ACETATE [Suspect]
     Active Substance: METHYLPREDNISOLONE ACETATE
     Indication: Chemotherapy side effect prophylaxis
     Dosage: 60 MG, 1X/DAY
     Route: 048
     Dates: start: 20240212, end: 20240213
  17. BACTRIM [Concomitant]
     Active Substance: SULFAMETHOXAZOLE\TRIMETHOPRIM
     Dosage: 1 DF THREE TIMES PER WEEK
  18. KARDEGIC [Concomitant]
     Active Substance: ASPIRIN DL-LYSINE
     Dosage: 1 DF, 1X/DAY
     Route: 048
  19. CLOBAZAM [Concomitant]
     Active Substance: CLOBAZAM
     Dosage: 1 DF, SINGLE
     Route: 048
     Dates: start: 20240212, end: 20240212

REACTIONS (1)
  - Haemolytic anaemia [Recovered/Resolved]

NARRATIVE: CASE EVENT DATE: 20240220
